FAERS Safety Report 7523752-0 (Version None)
Quarter: 2011Q2

REPORT INFORMATION
  Report Type: 
  Country: None (occurrence: None)
  Receive Date: 20110603
  Receipt Date: 20110523
  Transmission Date: 20111010
  Serious: No
  Sender: FDA-Public Use
  Company Number: US-CELGENEUS-163-21880-11032244

PATIENT
  Sex: Female
  Weight: 52.2 kg

DRUGS (12)
  1. VITAMIN D [Concomitant]
     Indication: VITAMIN D DEFICIENCY
     Dosage: 1000 IU (INTERNATIONAL UNIT)
     Route: 048
  2. PLAQUERIL [Concomitant]
     Dosage: 300 MILLIGRAM
     Route: 048
  3. REVLIMID [Suspect]
     Indication: SYSTEMIC LUPUS ERYTHEMATOSUS
     Dosage: 5 MILLIGRAM
     Route: 048
     Dates: start: 20110201
  4. OMEPRAZOLE [Concomitant]
     Dosage: 20 MILLIGRAM
     Route: 048
  5. AMLODIPINE [Concomitant]
     Dosage: 5 MILLIGRAM
     Route: 048
  6. FLEXERIL [Concomitant]
  7. MIRALAX [Concomitant]
     Indication: CONSTIPATION
  8. MICROGESTIN 1.5/30 [Concomitant]
     Dosage: 30 MILLIGRAM
     Route: 048
  9. AMITRIPTYLINE HCL [Concomitant]
     Indication: INSOMNIA
     Dosage: 10 MILLIGRAM
     Route: 048
  10. MIRALAX [Concomitant]
     Dosage: 1
     Route: 048
  11. DICLOFENAC SODIUM [Concomitant]
     Dosage: 50 MILLIGRAM
     Route: 048
  12. FLEXERIL [Concomitant]
     Indication: BACK PAIN
     Dosage: 5-10MG
     Route: 048

REACTIONS (2)
  - MENSTRUATION IRREGULAR [None]
  - MUSCLE SPASMS [None]
